FAERS Safety Report 13766680 (Version 1)
Quarter: 2017Q3

REPORT INFORMATION
  Report Type: Spontaneous
  Country: IT (occurrence: IT)
  Receive Date: 20170719
  Receipt Date: 20170719
  Transmission Date: 20171127
  Serious: Yes (Hospitalization)
  Sender: FDA-Public Use
  Company Number: IT-PFIZER INC-2613440

PATIENT
  Age: 78 Year
  Sex: Male

DRUGS (10)
  1. ESOPRAL /01479302/ [Concomitant]
     Active Substance: ESOMEPRAZOLE MAGNESIUM
     Indication: PRODUCT USED FOR UNKNOWN INDICATION
  2. TILDIEM [Concomitant]
     Active Substance: DILTIAZEM HYDROCHLORIDE
     Indication: PRODUCT USED FOR UNKNOWN INDICATION
  3. FAT EMULSION NOS [Concomitant]
     Active Substance: EGG PHOSPHOLIPIDS\SAFFLOWER OIL\SOYBEAN OIL
     Indication: PARENTERAL NUTRITION
     Dosage: UNK
     Dates: start: 20060315, end: 20060325
  4. CARDIOASPIRIN [Concomitant]
     Active Substance: ASPIRIN
     Indication: PRODUCT USED FOR UNKNOWN INDICATION
  5. TEICOPLANIN [Suspect]
     Active Substance: TEICOPLANIN
     Indication: AORTO-DUODENAL FISTULA
     Dosage: 400 MG, DAILY
     Dates: start: 20060311, end: 20060325
  6. TORVAST [Concomitant]
     Active Substance: ATORVASTATIN
     Indication: PRODUCT USED FOR UNKNOWN INDICATION
  7. TIMOLOL. [Concomitant]
     Active Substance: TIMOLOL
     Indication: PRODUCT USED FOR UNKNOWN INDICATION
  8. FLUCONAZOLO [Concomitant]
     Indication: PRODUCT USED FOR UNKNOWN INDICATION
     Dosage: 600 MG, DAILY
     Dates: start: 20060318, end: 20060325
  9. METRONIDAZOLE. [Suspect]
     Active Substance: METRONIDAZOLE
     Indication: AORTO-DUODENAL FISTULA
     Dosage: 1500 MG, DAILY
     Route: 042
     Dates: start: 20060318, end: 20060325
  10. TIENAM [Suspect]
     Active Substance: CILASTATIN SODIUM\IMIPENEM
     Indication: AORTO-DUODENAL FISTULA
     Dosage: 2 G, DAILY
     Route: 042
     Dates: start: 20060311, end: 20060325

REACTIONS (4)
  - Cerebral disorder [Unknown]
  - Blindness [Recovered/Resolved]
  - Miosis [Recovered/Resolved]
  - Dissociation [Recovered/Resolved]

NARRATIVE: CASE EVENT DATE: 20060325
